FAERS Safety Report 17122653 (Version 1)
Quarter: 2019Q4

REPORT INFORMATION
  Report Type: Report from Study
  Country: CA (occurrence: CA)
  Receive Date: 20191206
  Receipt Date: 20191206
  Transmission Date: 20200122
  Serious: Yes (Death, Other)
  Sender: FDA-Public Use
  Company Number: CA-ASTRAZENECA-2019SF70868

PATIENT
  Age: 879 Month
  Sex: Male
  Weight: 105.9 kg

DRUGS (1)
  1. LUMOXITI [Suspect]
     Active Substance: MOXETUMOMAB PASUDOTOX-TDFK
     Indication: HAIRY CELL LEUKAEMIA
     Dosage: 4.3 MG
     Route: 042
     Dates: start: 20190527, end: 20190920

REACTIONS (6)
  - Capillary leak syndrome [Unknown]
  - Pneumonia [Unknown]
  - Stenotrophomonas test positive [Unknown]
  - Cardiac failure congestive [Unknown]
  - Fluid overload [Unknown]
  - Respiratory failure [Fatal]

NARRATIVE: CASE EVENT DATE: 201909
